FAERS Safety Report 4336568-3 (Version None)
Quarter: 2004Q2

REPORT INFORMATION
  Report Type: 
  Country: None (occurrence: None)
  Receive Date: 20040409
  Receipt Date: 20040409
  Transmission Date: 20050107
  Serious: Yes (Other)
  Sender: FDA-Public Use
  Company Number: None

PATIENT
  Sex: Female

DRUGS (6)
  1. ZETIA [Suspect]
     Indication: LOW DENSITY LIPOPROTEIN INCREASED
     Dosage: 10 MG QDAY ORAL
     Route: 048
     Dates: start: 20040218, end: 20040308
  2. FEXOFENADINE HCL [Concomitant]
  3. LISINOPRIL [Concomitant]
  4. URSODIOL [Concomitant]
  5. HYDROCHLOROTHIAZIDE [Concomitant]
  6. RANITIDINE [Concomitant]

REACTIONS (1)
  - SWELLING FACE [None]
